FAERS Safety Report 24830310 (Version 1)
Quarter: 2025Q1

REPORT INFORMATION
  Report Type: Spontaneous
  Country: US (occurrence: US)
  Receive Date: 20250110
  Receipt Date: 20250110
  Transmission Date: 20250409
  Serious: Yes (Other)
  Sender: BAYER HEALTHCARE LLC
  Company Number: US-BAYER-2025A003670

PATIENT
  Age: 34 Year
  Sex: Male

DRUGS (1)
  1. ASPIRIN [Suspect]
     Active Substance: ASPIRIN
     Indication: Thrombocytosis

REACTIONS (3)
  - Upper gastrointestinal haemorrhage [None]
  - Product use in unapproved indication [None]
  - Treatment noncompliance [None]
